FAERS Safety Report 18272115 (Version 1)
Quarter: 2020Q3

REPORT INFORMATION
  Report Type: Spontaneous
  Country: US (occurrence: US)
  Receive Date: 20200916
  Receipt Date: 20200916
  Transmission Date: 20201103
  Serious: Yes (Life-Threatening, Hospitalization, Other)
  Sender: FDA-Public Use
  Company Number: US-SCIEGEN-2020SCILIT00286

PATIENT

DRUGS (6)
  1. PHYSOSTIGMINE [Interacting]
     Active Substance: PHYSOSTIGMINE
     Indication: ENCEPHALOPATHY
     Route: 065
  2. QUETIAPINE. [Suspect]
     Active Substance: QUETIAPINE
     Indication: PRODUCT USED FOR UNKNOWN INDICATION
     Route: 048
  3. LORAZEPAM. [Interacting]
     Active Substance: LORAZEPAM
     Indication: STATUS EPILEPTICUS
     Route: 065
  4. MIDAZOLAM. [Interacting]
     Active Substance: MIDAZOLAM
     Indication: STATUS EPILEPTICUS
     Route: 065
  5. NOREPINEPHRINE. [Interacting]
     Active Substance: NOREPINEPHRINE
     Indication: HYPOTENSION
     Route: 065
  6. FAT EMULSION NOS [Interacting]
     Active Substance: EGG PHOSPHOLIPIDS\SAFFLOWER OIL\SOYBEAN OIL
     Indication: TACHYCARDIA
     Dosage: 20%
     Route: 040

REACTIONS (10)
  - Intentional overdose [Unknown]
  - Status epilepticus [Unknown]
  - Hypotension [Unknown]
  - Mucosal disorder [Unknown]
  - Depressed level of consciousness [Recovering/Resolving]
  - Hypoxia [Recovering/Resolving]
  - Encephalopathy [Unknown]
  - Electrocardiogram QT prolonged [Recovering/Resolving]
  - Tachycardia [Recovering/Resolving]
  - Circulatory collapse [Recovering/Resolving]
